FAERS Safety Report 17083712 (Version 4)
Quarter: 2021Q1

REPORT INFORMATION
  Report Type: Report from Study
  Country: US (occurrence: US)
  Receive Date: 20191127
  Receipt Date: 20210312
  Transmission Date: 20210419
  Serious: No
  Sender: FDA-Public Use
  Company Number: NVSC2019US048137

PATIENT
  Age: 42 Year
  Sex: Male

DRUGS (3)
  1. ENTRESTO [Suspect]
     Active Substance: SACUBITRIL\VALSARTAN
     Indication: CARDIAC DISORDER
     Dosage: 50 MG (24 MG SACUBITRIL, 26 MG VALSARTAN), BID
     Route: 048
     Dates: start: 201910
  2. ENTRESTO [Suspect]
     Active Substance: SACUBITRIL\VALSARTAN
     Indication: BLOOD PRESSURE ABNORMAL
     Dosage: 50 MG, BID
     Route: 048
     Dates: start: 201911
  3. VALSARTAN. [Suspect]
     Active Substance: VALSARTAN
     Indication: PRODUCT USED FOR UNKNOWN INDICATION
     Dosage: UNK
     Route: 065

REACTIONS (5)
  - Dyspnoea [Not Recovered/Not Resolved]
  - Sputum discoloured [Recovering/Resolving]
  - Hypersensitivity [Unknown]
  - Product use in unapproved indication [Unknown]
  - Cough [Not Recovered/Not Resolved]

NARRATIVE: CASE EVENT DATE: 201910
